FAERS Safety Report 16205884 (Version 1)
Quarter: 2019Q2

REPORT INFORMATION
  Report Type: Spontaneous
  Country: US (occurrence: US)
  Receive Date: 20190416
  Receipt Date: 20190416
  Transmission Date: 20190711
  Serious: No
  Sender: FDA-Public Use
  Company Number: None

PATIENT
  Age: 62 Year
  Sex: Male
  Weight: 87.75 kg

DRUGS (2)
  1. MIRABEGRON [Suspect]
     Active Substance: MIRABEGRON
     Indication: HYPERTONIC BLADDER
     Route: 048
     Dates: start: 20181220, end: 20190315
  2. SOLIFENACIN 5MG [Concomitant]
     Dates: start: 20170101, end: 20190315

REACTIONS (1)
  - Hypertension [None]

NARRATIVE: CASE EVENT DATE: 20190315
